FAERS Safety Report 17227230 (Version 3)
Quarter: 2021Q1

REPORT INFORMATION
  Report Type: Report from Study
  Country: None (occurrence: US)
  Receive Date: 20200103
  Receipt Date: 20210212
  Transmission Date: 20210419
  Serious: Yes (Death, Hospitalization)
  Sender: FDA-Public Use
  Company Number: US-ABBVIE-19K-163-3216062-00

PATIENT
  Age: 75 Year
  Sex: Male

DRUGS (3)
  1. VENCLEXTA [Suspect]
     Active Substance: VENETOCLAX
     Indication: REFRACTORY ANAEMIA WITH AN EXCESS OF BLASTS
     Dosage: TAKE 4 TABLET(S) BY MOUTH DAILY
     Route: 048
     Dates: end: 2019
  2. VENCLEXTA [Suspect]
     Active Substance: VENETOCLAX
     Indication: ESSENTIAL HYPERTENSION
  3. VENCLEXTA [Suspect]
     Active Substance: VENETOCLAX
     Indication: RENAL CANCER
     Dosage: TAKE 6 TABLET(S) BY MOUTH DAILY
     Route: 048

REACTIONS (3)
  - Viral infection [Unknown]
  - Death [Fatal]
  - Off label use [Unknown]

NARRATIVE: CASE EVENT DATE: 201912
